FAERS Safety Report 10900878 (Version 1)
Quarter: 2015Q1

REPORT INFORMATION
  Report Type: Spontaneous
  Country: US (occurrence: US)
  Receive Date: 20150310
  Receipt Date: 20150310
  Transmission Date: 20150721
  Serious: No
  Sender: FDA-Public Use
  Company Number: US-PFIZER INC-2015086099

PATIENT
  Age: 51 Year
  Sex: Female
  Weight: 82 kg

DRUGS (4)
  1. CHANTIX [Suspect]
     Active Substance: VARENICLINE TARTRATE
     Indication: SMOKING CESSATION THERAPY
     Dosage: ONE WHITE TABLET, DAILY
     Dates: start: 20150222, end: 20150224
  2. CHANTIX [Suspect]
     Active Substance: VARENICLINE TARTRATE
     Dosage: BLUE TABLETS TWICE DAILY
     Dates: start: 20150301
  3. CHANTIX [Suspect]
     Active Substance: VARENICLINE TARTRATE
     Dosage: WHITE TABLETS, ONE IN THE MORNING AND ONE AT NIGHT
     Dates: start: 20150225, end: 20150228
  4. VALIUM [Concomitant]
     Active Substance: DIAZEPAM
     Indication: ANXIETY
     Dosage: 10 MG, 2X/DAY
     Dates: start: 2008

REACTIONS (2)
  - Hypersomnia [Not Recovered/Not Resolved]
  - Somnolence [Not Recovered/Not Resolved]

NARRATIVE: CASE EVENT DATE: 20150222
